FAERS Safety Report 23960207 (Version 1)
Quarter: 2024Q2

REPORT INFORMATION
  Report Type: Spontaneous
  Country: US (occurrence: US)
  Receive Date: 20240611
  Receipt Date: 20240611
  Transmission Date: 20240716
  Serious: No
  Sender: FDA-Public Use
  Company Number: US-LEO Pharma-370200

PATIENT
  Age: 66 Year
  Sex: Female

DRUGS (1)
  1. ADBRY [Suspect]
     Active Substance: TRALOKINUMAB-LDRM
     Indication: Dermatitis atopic
     Dosage: 2 INJECTIONS
     Dates: start: 20240208, end: 20240514

REACTIONS (4)
  - Pruritus [Unknown]
  - Injection site rash [Unknown]
  - Erythema [Unknown]
  - Peripheral swelling [Unknown]
